FAERS Safety Report 6145051-4 (Version None)
Quarter: 2009Q2

REPORT INFORMATION
  Report Type: 
  Country: None (occurrence: None)
  Receive Date: 20090402
  Receipt Date: 20090213
  Transmission Date: 20091009
  Serious: No
  Sender: FDA-Public Use
  Company Number: 1000004760

PATIENT
  Age: 66 Year
  Sex: Male

DRUGS (12)
  1. BYSTOLIC [Suspect]
     Indication: HYPERTENSION
     Dosage: 5 MG (5 MG, 1 IN 1 D), ORAL
     Route: 048
     Dates: start: 20081222, end: 20090128
  2. BYSTOLIC [Suspect]
     Indication: PALPITATIONS
     Dosage: 5 MG (5 MG, 1 IN 1 D), ORAL
     Route: 048
     Dates: start: 20081222, end: 20090128
  3. BYSTOLIC [Suspect]
     Indication: HYPERTENSION
     Dosage: 10 MG (10 MG, 1 IN 1 D), ORAL
     Route: 048
     Dates: start: 20090129, end: 20090212
  4. BYSTOLIC [Suspect]
     Indication: PALPITATIONS
     Dosage: 10 MG (10 MG, 1 IN 1 D), ORAL
     Route: 048
     Dates: start: 20090129, end: 20090212
  5. PRILOSEC [Concomitant]
  6. FINASTERIDE [Concomitant]
  7. ASPIRIN [Concomitant]
  8. POTASSIUM CHLORIDE [Concomitant]
  9. MAGNESIUM SULFATE [Concomitant]
  10. LORAZEPAM [Concomitant]
  11. PULMICORT-100 [Concomitant]
  12. FLOMAX [Concomitant]

REACTIONS (1)
  - RASH [None]
